FAERS Safety Report 11464219 (Version 1)
Quarter: 2015Q3

REPORT INFORMATION
  Report Type: Spontaneous
  Country: US (occurrence: US)
  Receive Date: 20150831
  Receipt Date: 20150831
  Transmission Date: 20151125
  Serious: No
  Sender: FDA-Public Use
  Company Number: US-ELI_LILLY_AND_COMPANY-US201106000919

PATIENT
  Sex: Male
  Weight: 123.27 kg

DRUGS (2)
  1. CYMBALTA [Suspect]
     Active Substance: DULOXETINE HYDROCHLORIDE
     Indication: DEPRESSION
     Dosage: 20 MG, BID
     Route: 048
     Dates: start: 20110215
  2. NAPROSYN [Concomitant]
     Active Substance: NAPROXEN

REACTIONS (1)
  - Anosmia [Not Recovered/Not Resolved]
